FAERS Safety Report 21455034 (Version 1)
Quarter: 2022Q4

REPORT INFORMATION
  Report Type: Spontaneous
  Country: US (occurrence: US)
  Receive Date: 20221014
  Receipt Date: 20221014
  Transmission Date: 20230113
  Serious: No
  Sender: FDA-Public Use
  Company Number: US-SANOFI-01313860

PATIENT
  Age: 82 Year
  Sex: Female

DRUGS (1)
  1. SOLIQUA 100/33 [Suspect]
     Active Substance: INSULIN GLARGINE\LIXISENATIDE
     Indication: Type 2 diabetes mellitus
     Dosage: 15 UNITS 1X AND DRUG TREATMENT DURATION:ABOUT A MONTH

REACTIONS (2)
  - Anxiety [Unknown]
  - Gait disturbance [Unknown]
